FAERS Safety Report 5151800-4 (Version None)
Quarter: 2006Q4

REPORT INFORMATION
  Report Type: 
  Country: None (occurrence: None)
  Receive Date: 20061115
  Receipt Date: 20060921
  Transmission Date: 20070319
  Serious: Yes (Hospitalization)
  Sender: FDA-Public Use
  Company Number: US-BOEHRINGER INGELHEIM PHARMACEUTICALS, INC.-2006-BP-11172BP

PATIENT
  Sex: Male

DRUGS (8)
  1. FLOMAX [Suspect]
     Indication: URINARY RETENTION
     Route: 048
     Dates: start: 20050101
  2. FLOMAX [Suspect]
     Indication: PROSTATE CANCER
  3. BACLOFEN [Concomitant]
     Indication: MUSCLE SPASMS
  4. FOLATE [Concomitant]
     Indication: MEDICAL DIET
  5. KLOR-CON [Concomitant]
     Indication: MINERAL SUPPLEMENTATION
  6. FUROSEMIDE [Concomitant]
     Indication: OEDEMA
  7. GEMFIBROZIL [Concomitant]
     Indication: BLOOD CHOLESTEROL INCREASED
  8. LUPRON [Concomitant]
     Indication: PROSTATE CANCER

REACTIONS (3)
  - CONCUSSION [None]
  - FALL [None]
  - HEAD INJURY [None]
